FAERS Safety Report 10252566 (Version 1)
Quarter: 2014Q2

REPORT INFORMATION
  Report Type: Spontaneous
  Country: US (occurrence: None)
  Receive Date: 20140619
  Receipt Date: 20140619
  Transmission Date: 20141212
  Serious: No
  Sender: FDA-Public Use
  Company Number: SYM-2013-10943

PATIENT
  Sex: Female

DRUGS (1)
  1. APLENZIN [Suspect]
     Indication: PRODUCT USED FOR UNKNOWN INDICATION

REACTIONS (2)
  - Memory impairment [None]
  - Attention deficit/hyperactivity disorder [None]
